FAERS Safety Report 4739967-0 (Version None)
Quarter: 2005Q3

REPORT INFORMATION
  Report Type: 
  Country: None (occurrence: None)
  Receive Date: 20050810
  Receipt Date: 20031030
  Transmission Date: 20060218
  Serious: No
  Sender: FDA-Public Use
  Company Number: US-GLAXOSMITHKLINE-A0432657A

PATIENT
  Sex: Female

DRUGS (5)
  1. PAXIL [Suspect]
     Indication: DEPRESSION
     Dosage: 30MG PER DAY
     Route: 048
  2. DEXEDRINE SR [Concomitant]
     Dosage: 15MG PER DAY
     Route: 048
  3. XANAX [Concomitant]
     Route: 048
  4. DEXEDRINE [Concomitant]
     Dosage: 5MG PER DAY
     Route: 048
  5. LEVOXYL [Concomitant]

REACTIONS (2)
  - ANGER [None]
  - DRUG WITHDRAWAL SYNDROME [None]
